FAERS Safety Report 4358524-1 (Version None)
Quarter: 2004Q2

REPORT INFORMATION
  Report Type: 
  Country: None (occurrence: None)
  Receive Date: 20040514
  Receipt Date: 20040505
  Transmission Date: 20050107
  Serious: Yes (Hospitalization)
  Sender: FDA-Public Use
  Company Number: FR-GLAXOSMITHKLINE-B0332533A

PATIENT
  Age: 81 Year
  Sex: Female

DRUGS (1)
  1. DEROXAT [Suspect]
     Dosage: 20MG PER DAY
     Route: 048
     Dates: start: 20040301

REACTIONS (3)
  - APATHY [None]
  - DEPRESSION [None]
  - HYPONATRAEMIA [None]
